FAERS Safety Report 4630892-2 (Version None)
Quarter: 2005Q2

REPORT INFORMATION
  Report Type: 
  Country: None (occurrence: None)
  Receive Date: 20050406
  Receipt Date: 20050318
  Transmission Date: 20051028
  Serious: Yes (Hospitalization)
  Sender: FDA-Public Use
  Company Number: USA050393561

PATIENT
  Sex: Female

DRUGS (4)
  1. CYMBALTA [Suspect]
     Dates: start: 20050301
  2. NEURONTIN (GABAPENTIN PFIZER) [Concomitant]
  3. LASIX [Concomitant]
  4. INSULIN [Concomitant]

REACTIONS (1)
  - HEPATIC ENCEPHALOPATHY [None]
